FAERS Safety Report 15040987 (Version 2)
Quarter: 2018Q2

REPORT INFORMATION
  Report Type: Spontaneous
  Country: HR (occurrence: HR)
  Receive Date: 20180621
  Receipt Date: 20180625
  Transmission Date: 20180711
  Serious: Yes (Other)
  Sender: FDA-Public Use
  Company Number: HR-UCBSA-2018026748

PATIENT
  Age: 10 Year
  Sex: Female

DRUGS (1)
  1. KEPPRA [Suspect]
     Active Substance: LEVETIRACETAM
     Indication: PRODUCT USED FOR UNKNOWN INDICATION
     Dosage: DAILY DOSE: 500 MG
     Route: 048

REACTIONS (4)
  - Pruritus [Unknown]
  - Epistaxis [Unknown]
  - Haemorrhage [Unknown]
  - Post procedural haemorrhage [Unknown]
